FAERS Safety Report 21043098 (Version 7)
Quarter: 2025Q1

REPORT INFORMATION
  Report Type: Spontaneous
  Country: JP (occurrence: JP)
  Receive Date: 20220705
  Receipt Date: 20250204
  Transmission Date: 20250409
  Serious: Yes (Hospitalization)
  Sender: GLAXOSMITHKLINE
  Company Number: JP-GLAXOSMITHKLINE-JP2022JPN100165

PATIENT

DRUGS (7)
  1. NUCALA [Suspect]
     Active Substance: MEPOLIZUMAB
     Indication: Asthma
     Dosage: 100 MG, Q4W
     Route: 058
     Dates: start: 20220407, end: 202310
  2. NUCALA [Suspect]
     Active Substance: MEPOLIZUMAB
     Dosage: 100 MG, Q4W
     Dates: start: 202311
  3. PREDNISOLONE [Suspect]
     Active Substance: PREDNISOLONE
     Dates: start: 202206
  4. PREDNISOLONE [Suspect]
     Active Substance: PREDNISOLONE
  5. PREDNISOLONE [Suspect]
     Active Substance: PREDNISOLONE
  6. PREDNISOLONE [Suspect]
     Active Substance: PREDNISOLONE
  7. TEZEPELUMAB [Concomitant]
     Active Substance: TEZEPELUMAB
     Indication: Asthma
     Dates: start: 202310, end: 202311

REACTIONS (6)
  - Hospitalisation [Unknown]
  - Asthma [Recovered/Resolved]
  - COVID-19 [Recovered/Resolved]
  - Fractured coccyx [Recovered/Resolved]
  - Cough [Recovering/Resolving]
  - Nasopharyngitis [Recovering/Resolving]

NARRATIVE: CASE EVENT DATE: 20220608
